FAERS Safety Report 7736350-0 (Version None)
Quarter: 2011Q3

REPORT INFORMATION
  Report Type: 
  Country: None (occurrence: None)
  Receive Date: 20110902
  Receipt Date: 20110822
  Transmission Date: 20111222
  Serious: Yes (Other)
  Sender: FDA-Public Use
  Company Number: 1000023314

PATIENT
  Weight: 2.12 kg

DRUGS (1)
  1. LEXAPRO [Suspect]
     Dosage: TRANSPLACENTAL
     Route: 064

REACTIONS (2)
  - SMALL FOR DATES BABY [None]
  - MATERNAL DRUGS AFFECTING FOETUS [None]
